FAERS Safety Report 20356721 (Version 1)
Quarter: 2022Q1

REPORT INFORMATION
  Report Type: Spontaneous
  Country: US (occurrence: None)
  Receive Date: 20220119
  Receipt Date: 20220119
  Transmission Date: 20220423
  Serious: Yes (Disabling)
  Sender: FDA-Public Use
  Company Number: None

PATIENT
  Age: 28 Month
  Sex: Female
  Weight: 12.15 kg

DRUGS (4)
  1. MIRALAX [Suspect]
     Active Substance: POLYETHYLENE GLYCOL 3350
     Indication: Constipation
     Dosage: OTHER QUANTITY : 3. TEASPOON(S);?FREQUENCY : DAILY;?
     Route: 048
     Dates: start: 20210223, end: 20211129
  2. PURELAX [Suspect]
     Active Substance: POLYETHYLENE GLYCOL 3350
  3. EPIPEN [Concomitant]
     Active Substance: EPINEPHRINE
  4. ZOFRAN [Concomitant]
     Active Substance: ONDANSETRON HYDROCHLORIDE

REACTIONS (5)
  - Sleep terror [None]
  - Anger [None]
  - Bruxism [None]
  - Head titubation [None]
  - Product use issue [None]

NARRATIVE: CASE EVENT DATE: 20211129
